FAERS Safety Report 7505822-6 (Version None)
Quarter: 2011Q2

REPORT INFORMATION
  Report Type: 
  Country: None (occurrence: None)
  Receive Date: 20110526
  Receipt Date: 20110516
  Transmission Date: 20111010
  Serious: Yes (Hospitalization)
  Sender: FDA-Public Use
  Company Number: US-ELI_LILLY_AND_COMPANY-US200909002257

PATIENT
  Sex: Female

DRUGS (5)
  1. PLAQUENIL [Concomitant]
     Dosage: 300 MG, DAILY (1/D)
     Route: 048
     Dates: start: 20091008
  2. PREDNISONE [Concomitant]
  3. FORTEO [Suspect]
     Indication: OSTEOPOROSIS
     Dosage: 20 UG, DAILY (1/D)
     Route: 058
     Dates: start: 20090616
  4. FORTEO [Suspect]
     Dosage: 20 UG, QD
     Route: 058
  5. FORTEO [Suspect]
     Dosage: 20 UG, DAILY (1/D)
     Route: 058

REACTIONS (13)
  - STRESS [None]
  - INJECTION SITE HAEMATOMA [None]
  - HYPERTENSION [None]
  - PARAESTHESIA [None]
  - VOMITING [None]
  - INJECTION SITE MASS [None]
  - INFLUENZA [None]
  - DEHYDRATION [None]
  - DIARRHOEA [None]
  - SYSTEMIC LUPUS ERYTHEMATOSUS [None]
  - GALLBLADDER DISORDER [None]
  - FATIGUE [None]
  - INJECTION SITE PAIN [None]
